FAERS Safety Report 20391113 (Version 1)
Quarter: 2022Q1

REPORT INFORMATION
  Report Type: Spontaneous
  Country: US (occurrence: None)
  Receive Date: 20220127
  Receipt Date: 20220127
  Transmission Date: 20220423
  Serious: Yes (Disabling, Other)
  Sender: FDA-Public Use
  Company Number: None

PATIENT
  Age: 77 Year
  Sex: Male

DRUGS (7)
  1. XTANDI [Suspect]
     Active Substance: ENZALUTAMIDE
     Indication: Prostate cancer
     Dosage: FREQUENCY : DAILY;?
     Route: 048
  2. VITAMINS [Concomitant]
     Active Substance: VITAMINS
  3. STOOL SOFTENER (DOCUSATE) [Concomitant]
     Active Substance: DOCUSATE
  4. VITAMIN D [Concomitant]
     Active Substance: VITAMIN D NOS
  5. XGEVA [Concomitant]
     Active Substance: DENOSUMAB
  6. brimonidine sol [Concomitant]
  7. dorzolamide/timolol sol [Concomitant]

REACTIONS (3)
  - Optic nerve injury [None]
  - Asthenia [None]
  - Therapy interrupted [None]
